FAERS Safety Report 14175737 (Version 3)
Quarter: 2017Q4

REPORT INFORMATION
  Report Type: Report from Study
  Country: US (occurrence: US)
  Receive Date: 20171109
  Receipt Date: 20171229
  Transmission Date: 20180321
  Serious: Yes (Other)
  Sender: FDA-Public Use
  Company Number: US-BAYER-2017-210451

PATIENT
  Age: 70 Year
  Sex: Female
  Weight: 72.1 kg

DRUGS (18)
  1. WAL PROFEN COLD AND SINUS [Concomitant]
     Active Substance: IBUPROFEN\PSEUDOEPHEDRINE HYDROCHLORIDE
     Dosage: 1000 IU, QD
  2. HYDROCHLOROTHIAZIDE AND LISINOPRIL [Concomitant]
     Active Substance: HYDROCHLOROTHIAZIDE\LISINOPRIL
     Dosage: 25 MG - 20 MG DAILY
     Route: 048
  3. CENTRUM SILVER [Concomitant]
     Active Substance: MINERALS\VITAMINS
     Dosage: 1 DAILY
     Route: 048
  4. ASPIRIN. [Concomitant]
     Active Substance: ASPIRIN
     Dosage: 81 MG, QD
     Route: 048
  5. LORAZEPAM. [Concomitant]
     Active Substance: LORAZEPAM
     Dosage: 1 MG, HS
     Route: 048
  6. SENNA [Concomitant]
     Active Substance: SENNA LEAF\SENNOSIDES\SENNOSIDES A AND B
     Indication: CONSTIPATION
     Dosage: 8.6 MG 2-3 CAPS DAILY PRN
  7. REGORAFENIB [Suspect]
     Active Substance: REGORAFENIB
     Indication: OVARIAN CANCER METASTATIC
     Dosage: 160 MG D1 - D21 OF 28 DAY CYCLE
     Route: 048
     Dates: start: 20171005, end: 20171014
  8. REGORAFENIB [Suspect]
     Active Substance: REGORAFENIB
     Indication: OVARIAN CANCER METASTATIC
     Dosage: 160 MG D1 - D21 OF 28 DAY CYCLE
     Route: 048
     Dates: start: 20171021, end: 20171025
  9. METOPROLOL. [Concomitant]
     Active Substance: METOPROLOL
     Dosage: 50 MG TWICE DAILY
     Route: 048
  10. NEUTRA-PHOS [Concomitant]
     Active Substance: POTASSIUM PHOSPHATE, DIBASIC\POTASSIUM PHOSPHATE, MONOBASIC\SODIUM PHOSPHATE, DIBASIC\SODIUM PHOSPHATE, MONOBASIC
     Dosage: 250  1 TABLET TWO TO THREE TIMES DAILY
     Route: 048
  11. SALINE [Concomitant]
     Active Substance: SODIUM CHLORIDE
     Indication: EYE PRURITUS
  12. CALTRATE WITH VITAMIN D [Concomitant]
     Active Substance: CALCIUM CARBONATE\CHOLECALCIFEROL
     Dosage: DAILY
     Route: 048
  13. PEPCID [Concomitant]
     Active Substance: FAMOTIDINE
     Dosage: 20 MG, QD
     Route: 048
  14. ASCORBIC ACID. [Concomitant]
     Active Substance: ASCORBIC ACID
     Dosage: 1000 MG, QD
     Route: 048
  15. DOCUSATE [Concomitant]
     Active Substance: DOCUSATE
     Indication: CONSTIPATION
     Dosage: 100 MG 2-3 CAPS DAILY PRN
  16. SILDENAFIL. [Suspect]
     Active Substance: SILDENAFIL
     Indication: NEOPLASM
     Dosage: 100 DAILY 1 - 21
     Route: 048
     Dates: start: 20171021, end: 20171025
  17. SILDENAFIL. [Suspect]
     Active Substance: SILDENAFIL
     Indication: NEOPLASM
     Dosage: 100 DAILY 1 - 21
     Route: 048
     Dates: start: 20171005, end: 20171014
  18. SALINE [Concomitant]
     Active Substance: SODIUM CHLORIDE
     Indication: DRY EYE
     Dosage: DROPS

REACTIONS (3)
  - Impaired healing [None]
  - Ulcerative keratitis [Recovered/Resolved]
  - Ulcerative keratitis [Recovered/Resolved]

NARRATIVE: CASE EVENT DATE: 20171009
